FAERS Safety Report 15811953 (Version 1)
Quarter: 2019Q1

REPORT INFORMATION
  Report Type: Spontaneous
  Country: US (occurrence: US)
  Receive Date: 20190110
  Receipt Date: 20190110
  Transmission Date: 20190417
  Serious: Yes (Life-Threatening, Other)
  Sender: FDA-Public Use
  Company Number: None

PATIENT
  Age: 60 Year
  Sex: Female
  Weight: 96.75 kg

DRUGS (13)
  1. ACETOMENAPHEN [Concomitant]
  2. ATORVASTATIN CALCIUM 20 MG TAB APOT [Suspect]
     Active Substance: ATORVASTATIN CALCIUM
     Indication: BLOOD CHOLESTEROL INCREASED
     Dosage: ?          QUANTITY:1 TABLET(S);?
     Route: 048
     Dates: start: 20180926, end: 20181019
  3. MULTIPLE VITAMIN [Concomitant]
     Active Substance: VITAMINS
  4. COENZYME Q10 [Concomitant]
     Active Substance: UBIDECARENONE
  5. MAGNESIUM [Concomitant]
     Active Substance: MAGNESIUM
  6. CPAP [Concomitant]
     Active Substance: DEVICE
  7. CYCLOASTRAGANOL [Concomitant]
  8. TURMERIC [Concomitant]
     Active Substance: HERBALS\TURMERIC
  9. EYEGLASSES [Concomitant]
  10. LECITHIN [Concomitant]
     Active Substance: LECITHIN
  11. WALKER [Concomitant]
  12. FISH OIL [Concomitant]
     Active Substance: FISH OIL
  13. MILK THISTLE [Concomitant]
     Active Substance: DIETARY SUPPLEMENT\HERBALS\MILK THISTLE

REACTIONS (3)
  - Drug hypersensitivity [None]
  - Hypercholesterolaemia [None]
  - Therapy non-responder [None]

NARRATIVE: CASE EVENT DATE: 20181228
